FAERS Safety Report 21842494 (Version 1)
Quarter: 2023Q1

REPORT INFORMATION
  Report Type: Spontaneous
  Country: US (occurrence: None)
  Receive Date: 20230109
  Receipt Date: 20230109
  Transmission Date: 20230417
  Serious: Yes (Other)
  Sender: FDA-Public Use
  Company Number: None

PATIENT
  Age: 79 Year
  Sex: Female
  Weight: 65.77 kg

DRUGS (2)
  1. METOPROLOL TARTRATE [Suspect]
     Active Substance: METOPROLOL TARTRATE
  2. COREG [Suspect]
     Active Substance: CARVEDILOL

REACTIONS (11)
  - Hallucinations, mixed [None]
  - Hypoaesthesia [None]
  - Arterial occlusive disease [None]
  - Confusional state [None]
  - Disorientation [None]
  - Somnambulism [None]
  - Fall [None]
  - Head injury [None]
  - Thoracic vertebral fracture [None]
  - Drug intolerance [None]
  - Emotional distress [None]

NARRATIVE: CASE EVENT DATE: 20221107
